FAERS Safety Report 4439322-7 (Version None)
Quarter: 2004Q3

REPORT INFORMATION
  Report Type: 
  Country: None (occurrence: None)
  Receive Date: 20040728
  Receipt Date: 20040514
  Transmission Date: 20050211
  Serious: No
  Sender: FDA-Public Use
  Company Number: USA040465966

PATIENT
  Age: 34 Year
  Sex: Female
  Weight: 65 kg

DRUGS (2)
  1. STRATTERA [Suspect]
     Indication: DISTURBANCE IN ATTENTION
     Dosage: 40 MG/L IN THE MORNING
     Dates: start: 20040401
  2. HYDROCHLOROTHIAZIDE [Concomitant]

REACTIONS (5)
  - DRUG EFFECT DECREASED [None]
  - DRY MOUTH [None]
  - FATIGUE [None]
  - NAUSEA [None]
  - YAWNING [None]
